FAERS Safety Report 5132745-2 (Version None)
Quarter: 2006Q4

REPORT INFORMATION
  Report Type: 
  Country: None (occurrence: None)
  Receive Date: 20061023
  Receipt Date: 20060928
  Transmission Date: 20070319
  Serious: Yes (Death)
  Sender: FDA-Public Use
  Company Number: HR-GLAXOSMITHKLINE-B0443408A

PATIENT
  Age: 75 Year
  Sex: Male

DRUGS (7)
  1. REQUIP [Suspect]
     Indication: PARKINSON'S DISEASE
     Dosage: 5MG SEE DOSAGE TEXT
     Route: 048
     Dates: start: 20060501, end: 20060915
  2. MADOPAR [Suspect]
     Indication: PARKINSON'S DISEASE
     Route: 048
     Dates: start: 20010101, end: 20060915
  3. ENTACAPONE [Suspect]
     Indication: PARKINSON'S DISEASE
     Route: 048
     Dates: start: 20060701, end: 20060915
  4. ALDACTONE [Concomitant]
     Dosage: 50MG UNKNOWN
     Route: 065
     Dates: start: 20060701
  5. RUDAKOL [Concomitant]
     Indication: GASTROINTESTINAL DISORDER
     Dates: start: 20060701
  6. LOPERAMIDE [Concomitant]
     Indication: GASTROINTESTINAL DISORDER
     Dates: start: 20060701
  7. ASPIRIN [Concomitant]

REACTIONS (5)
  - COMPLETED SUICIDE [None]
  - DEPRESSED MOOD [None]
  - DEPRESSIVE SYMPTOM [None]
  - HOMICIDE [None]
  - MENTAL DISORDER [None]
